FAERS Safety Report 7297864-3 (Version None)
Quarter: 2011Q1

REPORT INFORMATION
  Report Type: 
  Country: None (occurrence: None)
  Receive Date: 20110217
  Receipt Date: 20101111
  Transmission Date: 20110831
  Serious: No
  Sender: FDA-Public Use
  Company Number: US-KINGPHARMUSA00001-K201001385

PATIENT
  Age: 31 Year
  Sex: Female
  Weight: 67.12 kg

DRUGS (5)
  1. PRILOSEC [Concomitant]
     Indication: IRRITABLE BOWEL SYNDROME
     Dosage: UNK, BID
     Route: 048
  2. FLECTOR [Suspect]
     Indication: SPINAL OSTEOARTHRITIS
     Dosage: UNK PATCH FOR 12 HRS PRN
     Route: 061
     Dates: start: 20101101
  3. SYNTHROID [Concomitant]
     Indication: AUTOIMMUNE THYROIDITIS
     Dosage: UNK
  4. TYLENOL [Concomitant]
     Indication: FIBROMYALGIA
     Dosage: UNK, PRN
     Route: 048
  5. AMBIEN [Concomitant]
     Indication: SLEEP DISORDER
     Dosage: UNK

REACTIONS (4)
  - ABDOMINAL PAIN UPPER [None]
  - DIARRHOEA [None]
  - DYSPEPSIA [None]
  - HYPERHIDROSIS [None]
